FAERS Safety Report 13748144 (Version 1)
Quarter: 2017Q3

REPORT INFORMATION
  Report Type: Spontaneous
  Country: PL (occurrence: PL)
  Receive Date: 20170713
  Receipt Date: 20170713
  Transmission Date: 20171127
  Serious: Yes (Other)
  Sender: FDA-Public Use
  Company Number: PL-BAXTER-2017BAX025439

PATIENT
  Age: 43 Year
  Sex: Female
  Weight: 82 kg

DRUGS (4)
  1. METYPRED [Suspect]
     Active Substance: METHYLPREDNISOLONE
     Indication: OVERLAP SYNDROME
     Route: 048
     Dates: start: 20170116, end: 20170216
  2. ENDOXAN [Suspect]
     Active Substance: CYCLOPHOSPHAMIDE
     Indication: OVERLAP SYNDROME
     Route: 042
     Dates: start: 20170216, end: 20170216
  3. NITRENDYPINA [Suspect]
     Active Substance: NITRENDIPINE
     Indication: OVERLAP SYNDROME
     Route: 048
     Dates: start: 20170116, end: 20170216
  4. UROMITEXAN [Suspect]
     Active Substance: MESNA
     Indication: OVERLAP SYNDROME
     Route: 042
     Dates: start: 20170116, end: 20170216

REACTIONS (4)
  - Erythema [Recovered/Resolved]
  - Peripheral swelling [Recovered/Resolved]
  - Swelling face [Recovered/Resolved]
  - Body temperature increased [Recovered/Resolved]

NARRATIVE: CASE EVENT DATE: 20170216
